FAERS Safety Report 7282552-X (Version None)
Quarter: 2011Q1

REPORT INFORMATION
  Report Type: 
  Country: None (occurrence: None)
  Receive Date: 20110209
  Receipt Date: 20110206
  Transmission Date: 20110831
  Serious: No
  Sender: FDA-Public Use
  Company Number: US-PFIZER INC-2011026388

PATIENT
  Sex: Male
  Weight: 108.84 kg

DRUGS (5)
  1. VITAMIN B-12 [Concomitant]
     Dosage: UNK
  2. CHANTIX [Suspect]
     Indication: SMOKING CESSATION THERAPY
     Dosage: UNK
     Route: 048
     Dates: start: 20110101, end: 20110201
  3. GLUCOSAMINE [Concomitant]
     Indication: ARTHROPATHY
     Dosage: UNK
  4. VITAMIN B6 [Concomitant]
     Dosage: UNK
  5. CHONDROITIN [Concomitant]
     Indication: ARTHROPATHY
     Dosage: UNK

REACTIONS (1)
  - RASH [None]
